FAERS Safety Report 12416731 (Version 1)
Quarter: 2016Q2

REPORT INFORMATION
  Report Type: Spontaneous
  Country: US (occurrence: US)
  Receive Date: 20160530
  Receipt Date: 20160530
  Transmission Date: 20160815
  Serious: No
  Sender: FDA-Public Use
  Company Number: US-WEST-WARD PHARMACEUTICALS CORP.-US-H14001-15-01825

PATIENT
  Age: 61 Year
  Sex: Male
  Weight: 129.39 kg

DRUGS (2)
  1. TESTOSTERONE CYPIONATE. [Suspect]
     Active Substance: TESTOSTERONE CYPIONATE
     Indication: BLOOD TESTOSTERONE DECREASED
     Route: 061
  2. TESTOSTERONE CYPIONATE INJECTION [Concomitant]
     Active Substance: TESTOSTERONE CYPIONATE
     Indication: BLOOD TESTOSTERONE DECREASED
     Route: 030

REACTIONS (1)
  - Exposure via direct contact [Recovered/Resolved]

NARRATIVE: CASE EVENT DATE: 20151010
